FAERS Safety Report 4979572-4 (Version None)
Quarter: 2006Q2

REPORT INFORMATION
  Report Type: 
  Country: None (occurrence: None)
  Receive Date: 20060421
  Receipt Date: 20060222
  Transmission Date: 20061013
  Serious: Yes (Hospitalization)
  Sender: FDA-Public Use
  Company Number: JP-ROCHE-438071

PATIENT
  Age: 7 Year
  Sex: Male
  Weight: 21 kg

DRUGS (4)
  1. TAMIFLU [Suspect]
     Dosage: FORM: DRY SYRUP.
     Route: 048
     Dates: start: 20060205, end: 20060205
  2. CEFZON [Concomitant]
     Dosage: FORM: FINE GRANULE.
     Route: 048
     Dates: start: 20060205, end: 20060205
  3. PERIACTIN [Concomitant]
     Route: 048
     Dates: start: 20060205, end: 20060205
  4. UNSPECIFIED DRUG [Concomitant]
     Dosage: REPORTED AS UNKNOWN DRUG (ANTIPYRETICS, ANALGESICS AND ANTI-INFLAMMATORY AGENTS).
     Dates: start: 20060205, end: 20060205

REACTIONS (1)
  - ABNORMAL BEHAVIOUR [None]
